FAERS Safety Report 8896319 (Version 1)
Quarter: 2012Q4

REPORT INFORMATION
  Report Type: Spontaneous
  Country: US (occurrence: None)
  Receive Date: 20121106
  Receipt Date: 20121106
  Transmission Date: 20130627
  Serious: Yes (Hospitalization)
  Sender: FDA-Public Use
  Company Number: None

PATIENT
  Age: 85 Year
  Sex: Male
  Weight: 56.5 kg

DRUGS (1)
  1. GALANTAMINE [Suspect]
     Indication: ALZHEIMER^S DISEASE
     Route: 048
     Dates: start: 20121015, end: 20121101

REACTIONS (2)
  - Bradycardia [None]
  - Fatigue [None]
